FAERS Safety Report 5392683-7 (Version None)
Quarter: 2007Q3

REPORT INFORMATION
  Report Type: 
  Country: None (occurrence: None)
  Receive Date: 20070720
  Receipt Date: 20070710
  Transmission Date: 20080115
  Serious: Yes (Other)
  Sender: FDA-Public Use
  Company Number: FR-ABBOTT-07P-056-0374083-00

PATIENT
  Age: 40 Year
  Sex: Male

DRUGS (1)
  1. DEPAKENE [Suspect]
     Indication: TEMPORAL LOBE EPILEPSY
     Route: 048

REACTIONS (2)
  - ABNORMAL BEHAVIOUR [None]
  - METABOLIC ENCEPHALOPATHY [None]
